FAERS Safety Report 21972156 (Version 2)
Quarter: 2023Q1

REPORT INFORMATION
  Report Type: Spontaneous
  Country: KR (occurrence: KR)
  Receive Date: 20230209
  Receipt Date: 20230301
  Transmission Date: 20230417
  Serious: Yes (Hospitalization)
  Sender: FDA-Public Use
  Company Number: KR-002147023-NVSC2023KR028790

PATIENT
  Age: 5 Decade
  Sex: Female

DRUGS (3)
  1. KISQALI [Suspect]
     Active Substance: RIBOCICLIB
     Indication: Product used for unknown indication
     Dosage: 2 CYCLICAL (FOR ABOUT 2 CYCLES)
     Route: 065
  2. KISQALI [Suspect]
     Active Substance: RIBOCICLIB
     Dosage: 400 MG
     Route: 065
  3. LENARA [Concomitant]
     Indication: Product used for unknown indication
     Dosage: 2 CYCLICAL (FOR ABOUT 2 CYCLES)
     Route: 065

REACTIONS (1)
  - Liver function test increased [Recovered/Resolved]
